FAERS Safety Report 4594185-4 (Version None)
Quarter: 2005Q1

REPORT INFORMATION
  Report Type: 
  Country: None (occurrence: None)
  Receive Date: 20050301
  Receipt Date: 20050128
  Transmission Date: 20050727
  Serious: Yes (Other)
  Sender: FDA-Public Use
  Company Number: AU-GLAXOSMITHKLINE-B0373115A

PATIENT
  Age: 53 Year
  Sex: Female
  Weight: 59 kg

DRUGS (1)
  1. IMIGRAN [Suspect]
     Indication: MIGRAINE
     Dosage: 60U SEE DOSAGE TEXT
     Route: 065
     Dates: end: 20040901

REACTIONS (4)
  - ASTHENIA [None]
  - HEMIPARESIS [None]
  - MUSCLE SPASMS [None]
  - TREMOR [None]
